FAERS Safety Report 4733283-9 (Version None)
Quarter: 2005Q3

REPORT INFORMATION
  Report Type: 
  Country: None (occurrence: None)
  Receive Date: 20050803
  Receipt Date: 20041123
  Transmission Date: 20060218
  Serious: Yes (Hospitalization, Disabling)
  Sender: FDA-Public Use
  Company Number: GB-BRISTOL-MYERS SQUIBB COMPANY-12773495

PATIENT
  Age: 46 Year
  Sex: Female
  Weight: 91 kg

DRUGS (3)
  1. PACLITAXEL [Suspect]
     Indication: BREAST CANCER
     Route: 042
     Dates: start: 20041029, end: 20041029
  2. CYCLOPHOSPHAMIDE [Suspect]
     Indication: BREAST CANCER
     Dates: start: 20040823, end: 20040823
  3. EPIRUBICIN [Suspect]
     Indication: BREAST CANCER
     Dates: start: 20040823, end: 20040823

REACTIONS (1)
  - PULMONARY EMBOLISM [None]
